FAERS Safety Report 5321974-0 (Version None)
Quarter: 2007Q2

REPORT INFORMATION
  Report Type: 
  Country: None (occurrence: None)
  Receive Date: 20070511
  Receipt Date: 20070502
  Transmission Date: 20071010
  Serious: Yes (Hospitalization, Other)
  Sender: FDA-Public Use
  Company Number: PHFR2007GB00883

PATIENT
  Age: 62 Year
  Sex: Female

DRUGS (5)
  1. VOLTAREN [Suspect]
     Indication: PAIN
     Dosage: 4 TABLETS
     Route: 048
     Dates: start: 20070219
  2. VOLTAREN [Suspect]
     Dosage: 4 TABLETS
     Route: 048
     Dates: start: 20070220
  3. OMEPRAZOLE [Concomitant]
     Dosage: 20 MG, BID
     Route: 048
  4. DURAGESIC-100 [Concomitant]
     Indication: PAIN
     Dosage: 50 UG
     Route: 061
  5. PARACETAMOL [Concomitant]
     Indication: PAIN
     Dosage: 1 G, QID
     Route: 048

REACTIONS (3)
  - ABDOMINAL PAIN [None]
  - DYSPEPSIA [None]
  - VOMITING [None]
